FAERS Safety Report 7432978-6 (Version None)
Quarter: 2011Q2

REPORT INFORMATION
  Report Type: 
  Country: None (occurrence: None)
  Receive Date: 20110422
  Receipt Date: 20110419
  Transmission Date: 20111010
  Serious: No
  Sender: FDA-Public Use
  Company Number: US-PFIZER INC-2011040365

PATIENT
  Sex: Male
  Weight: 86.168 kg

DRUGS (4)
  1. REQUIP [Concomitant]
     Indication: PARKINSON'S DISEASE
     Dosage: 0.5 MG, 2X/DAY
     Route: 048
  2. VIAGRA [Suspect]
     Indication: ERECTILE DYSFUNCTION
     Dosage: 100 MG, UNK
     Route: 048
     Dates: start: 20110101, end: 20110401
  3. PAXIL [Concomitant]
     Indication: DEPRESSION
     Dosage: 25 MG, 2X/DAY
     Route: 048
  4. AMANTADINE [Concomitant]
     Indication: PARKINSON'S DISEASE
     Dosage: 100 MG, 2X/DAY

REACTIONS (2)
  - HEADACHE [None]
  - DRUG INEFFECTIVE [None]
